FAERS Safety Report 17594934 (Version 2)
Quarter: 2020Q2

REPORT INFORMATION
  Report Type: Spontaneous
  Country: JP (occurrence: JP)
  Receive Date: 20200328
  Receipt Date: 20200529
  Transmission Date: 20200713
  Serious: No
  Sender: FDA-Public Use
  Company Number: JP-UCBSA-2020012555

PATIENT
  Age: 2 Year
  Sex: Female

DRUGS (4)
  1. LEVOCETIRIZINE HYDROCHLORIDE [Suspect]
     Active Substance: LEVOCETIRIZINE HYDROCHLORIDE
     Indication: NASOPHARYNGITIS
     Dosage: UNK, 3X/DAY (TID)
     Route: 048
  2. LEVOCETIRIZINE HYDROCHLORIDE [Suspect]
     Active Substance: LEVOCETIRIZINE HYDROCHLORIDE
     Indication: OFF LABEL USE
  3. AMBROXOL HYDROCHLORIDE [Suspect]
     Active Substance: AMBROXOL HYDROCHLORIDE
     Indication: NASOPHARYNGITIS
     Dosage: UNK, 3X/DAY (TID)
     Route: 048
  4. TIPEPIDINE HIBENZATE [Suspect]
     Active Substance: TIPEPIDINE HIBENZATE
     Indication: NASOPHARYNGITIS
     Dosage: UNK, 3X/DAY (TID)
     Route: 048

REACTIONS (1)
  - No adverse event [Unknown]
